FAERS Safety Report 6167921-3 (Version None)
Quarter: 2009Q2

REPORT INFORMATION
  Report Type: 
  Country: None (occurrence: None)
  Receive Date: 20090424
  Receipt Date: 20090424
  Transmission Date: 20091009
  Serious: No
  Sender: FDA-Public Use
  Company Number: None

PATIENT
  Age: 63 Year
  Sex: Male
  Weight: 77.2 kg

DRUGS (2)
  1. WARFARIN SODIUM [Suspect]
     Indication: AORTIC VALVE REPLACEMENT
     Dosage: VARING DAILY ORAL, LONGTERM
     Route: 048
  2. WARFARIN SODIUM [Suspect]
     Indication: ENDOCARDITIS
     Dosage: VARING DAILY ORAL, LONGTERM
     Route: 048

REACTIONS (1)
  - INTERNATIONAL NORMALISED RATIO ABNORMAL [None]
